FAERS Safety Report 14935071 (Version 2)
Quarter: 2018Q2

REPORT INFORMATION
  Report Type: Spontaneous
  Country: DE (occurrence: DE)
  Receive Date: 20180524
  Receipt Date: 20180601
  Transmission Date: 20180711
  Serious: Yes (Hospitalization)
  Sender: FDA-Public Use
  Company Number: DE-PFIZER INC-2018209953

PATIENT
  Age: 27 Year
  Sex: Male

DRUGS (2)
  1. PARACETAMOL [Suspect]
     Active Substance: ACETAMINOPHEN
     Dosage: NK MG, NK
  2. IBUPROFEN. [Suspect]
     Active Substance: IBUPROFEN
     Dosage: NK MG, NK

REACTIONS (2)
  - Nausea [Unknown]
  - Headache [Unknown]
